FAERS Safety Report 20684881 (Version 1)
Quarter: 2022Q2

REPORT INFORMATION
  Report Type: Spontaneous
  Country: CN (occurrence: CN)
  Receive Date: 20220407
  Receipt Date: 20220407
  Transmission Date: 20220721
  Serious: Yes (Hospitalization)
  Sender: FDA-Public Use
  Company Number: CN-PFIZER INC-202200483344

PATIENT
  Sex: Female

DRUGS (11)
  1. AVIBACTAM SODIUM\CEFTAZIDIME [Suspect]
     Active Substance: AVIBACTAM SODIUM\CEFTAZIDIME
     Indication: Pneumonia
     Dosage: 2.5 G, 3X/DAY
     Route: 041
     Dates: start: 20220130
  2. JING CHANG LE [Concomitant]
     Indication: Dysbiosis
     Dosage: 0.5 G, 3X/DAY
     Route: 048
     Dates: start: 20220121, end: 20220307
  3. Compound Glutamine Entersoluble Capsules [Concomitant]
     Indication: Functional gastrointestinal disorder
     Dosage: 2 CAPSULES, 3X/DAY
     Route: 048
     Dates: start: 20220121, end: 20220307
  4. LEVOTHYROXINE SODIUM [Concomitant]
     Active Substance: LEVOTHYROXINE SODIUM
     Indication: Hypothyroidism
     Dosage: 125 UG, 1X/DAY
     Route: 048
     Dates: start: 20220121, end: 20220307
  5. REBAMIPIDE [Concomitant]
     Active Substance: REBAMIPIDE
     Indication: Prophylaxis against gastrointestinal ulcer
     Dosage: 0.1 G, 3X/DAY
     Route: 048
     Dates: start: 20220121, end: 20220307
  6. INSULIN GLARGINE [Concomitant]
     Active Substance: INSULIN GLARGINE
     Indication: Blood glucose increased
     Dosage: 16 IU, 1X/DAY
     Route: 058
     Dates: start: 20220121, end: 20220307
  7. AROTINOLOL HYDROCHLORIDE [Concomitant]
     Active Substance: AROTINOLOL HYDROCHLORIDE
     Indication: Heart rate abnormal
     Dosage: 10 MG, 1X/DAY
     Route: 048
     Dates: start: 20220121, end: 20220307
  8. ORYZ-ASPERGILLUS ENZYME AND PANCREATIN [Concomitant]
     Indication: Dyspepsia
     Dosage: 2 TABLETS, 3X/DAY
     Route: 048
     Dates: start: 20220121, end: 20220307
  9. IDEBENONE [Concomitant]
     Active Substance: IDEBENONE
     Indication: Cerebral disorder
     Dosage: 30 MG, 3X/DAY
     Route: 048
     Dates: start: 20220121, end: 20220307
  10. SHI YI [Concomitant]
     Indication: Dysbiosis
     Dosage: 400 MG, 3X/DAY
     Route: 048
     Dates: start: 20220121, end: 20220307
  11. VINCAMINE [Concomitant]
     Active Substance: VINCAMINE
     Indication: Cerebral disorder
     Dosage: 30 MG, 2X/DAY
     Route: 048
     Dates: start: 20220121, end: 20220307

REACTIONS (2)
  - Blood creatinine increased [Recovering/Resolving]
  - Renal impairment [Recovering/Resolving]

NARRATIVE: CASE EVENT DATE: 20220201
